FAERS Safety Report 8299493-1 (Version None)
Quarter: 2012Q2

REPORT INFORMATION
  Report Type: 
  Country: None (occurrence: None)
  Receive Date: 20120419
  Receipt Date: 20120409
  Transmission Date: 20120825
  Serious: Yes (Hospitalization, Other)
  Sender: FDA-Public Use
  Company Number: US-BRISTOL-MYERS SQUIBB COMPANY-16510588

PATIENT
  Age: 49 Year
  Sex: Female
  Weight: 51 kg

DRUGS (4)
  1. CAMPATH [Suspect]
     Indication: RENAL TRANSPLANT
     Route: 042
     Dates: start: 20120328, end: 20120328
  2. NULOJIX [Suspect]
     Indication: RENAL TRANSPLANT
     Route: 042
     Dates: start: 20120328
  3. MYCOPHENOLATE MOFETIL (CELLCEPT) [Suspect]
     Indication: RENAL TRANSPLANT
     Route: 048
     Dates: start: 20120328
  4. MEDROL [Suspect]
     Indication: RENAL TRANSPLANT
     Dosage: INJ
     Route: 042
     Dates: start: 20120328, end: 20120328

REACTIONS (1)
  - RENAL ARTERY THROMBOSIS [None]
